FAERS Safety Report 4416783-0 (Version None)
Quarter: 2004Q3

REPORT INFORMATION
  Report Type: 
  Country: None (occurrence: None)
  Receive Date: 20040802
  Receipt Date: 20040719
  Transmission Date: 20050211
  Serious: No
  Sender: FDA-Public Use
  Company Number: D01200402438

PATIENT
  Age: 49 Year
  Sex: Female

DRUGS (12)
  1. ELITEK [Suspect]
     Dosage: 19.9 MG/KG QD
     Route: 042
     Dates: start: 20040616, end: 20040620
  2. CYTARABINE [Concomitant]
  3. MYLOTARG [Concomitant]
  4. SULFAMETHOXAZOLE [Concomitant]
  5. COREG [Concomitant]
  6. ALTACE [Concomitant]
  7. COUMADIN [Concomitant]
  8. PROTONIX [Concomitant]
  9. FOLIC ACID [Concomitant]
  10. CIPROFLOXACIN [Concomitant]
  11. SPORANOX [Concomitant]
  12. ACYCLOVIR [Concomitant]

REACTIONS (9)
  - ALANINE AMINOTRANSFERASE INCREASED [None]
  - ASCITES [None]
  - ASPARTATE AMINOTRANSFERASE INCREASED [None]
  - BLOOD BILIRUBIN INCREASED [None]
  - CARDIAC FAILURE [None]
  - GALLBLADDER DISORDER [None]
  - ILEUS [None]
  - SEPTIC SHOCK [None]
  - STAPHYLOCOCCAL BACTERAEMIA [None]
